FAERS Safety Report 4315143-0 (Version None)
Quarter: 2004Q1

REPORT INFORMATION
  Report Type: 
  Country: None (occurrence: None)
  Receive Date: 20040310
  Receipt Date: 20040227
  Transmission Date: 20041129
  Serious: Yes (Other)
  Sender: FDA-Public Use
  Company Number: FR-GLAXOSMITHKLINE-B0324979A

PATIENT
  Age: 44 Year
  Sex: Female

DRUGS (2)
  1. MALARONE [Suspect]
     Indication: MALARIA PROPHYLAXIS
     Dosage: 1TAB PER DAY
     Route: 048
     Dates: start: 20031205, end: 20031226
  2. BECOTIDE [Concomitant]
     Indication: ASTHMA
     Dosage: 50MCG PER DAY
     Route: 055

REACTIONS (1)
  - ELECTROCARDIOGRAM ABNORMAL [None]
